FAERS Safety Report 24254002 (Version 3)
Quarter: 2024Q3

REPORT INFORMATION
  Report Type: Spontaneous
  Country: FR (occurrence: FR)
  Receive Date: 20240827
  Receipt Date: 20240912
  Transmission Date: 20241017
  Serious: Yes (Hospitalization)
  Sender: FRESENIUS KABI
  Company Number: FR-GILEAD-2024-0682826

PATIENT
  Sex: Male
  Weight: 93 kg

DRUGS (40)
  1. PEMETREXED [Suspect]
     Active Substance: PEMETREXED
     Indication: Non-small cell lung cancer metastatic
     Dosage: 880 MG?FOA - INJECTION
     Route: 042
     Dates: start: 20240510, end: 20240510
  2. PEMETREXED [Suspect]
     Active Substance: PEMETREXED
     Dosage: 790 MG?FOA - INJECTION
     Route: 042
     Dates: start: 20240419, end: 20240419
  3. PEMETREXED [Suspect]
     Active Substance: PEMETREXED
     Dosage: 650 MG?FOA - INJECTION
     Route: 042
     Dates: start: 20240823, end: 20240823
  4. PEMETREXED [Suspect]
     Active Substance: PEMETREXED
     Dosage: 690 MG?FOA - INJECTION
     Route: 042
     Dates: start: 20240614, end: 20240614
  5. PEMETREXED [Suspect]
     Active Substance: PEMETREXED
     Dosage: 700 MG?FOA - INJECTION
     Route: 042
     Dates: start: 20240705, end: 20240705
  6. PEMETREXED [Suspect]
     Active Substance: PEMETREXED
     Dosage: FOA - INJECTION
     Route: 042
  7. CARBOPLATIN [Suspect]
     Active Substance: CARBOPLATIN
     Indication: Non-small cell lung cancer metastatic
     Dosage: 470 MG?FOA - INJECTION
     Route: 042
     Dates: start: 20240614, end: 20240614
  8. CARBOPLATIN [Suspect]
     Active Substance: CARBOPLATIN
     Dosage: 575 MG?FOA - INJECTION
     Route: 042
     Dates: start: 20240513, end: 20240513
  9. CARBOPLATIN [Suspect]
     Active Substance: CARBOPLATIN
     Dosage: 450 MG?FOA - INJECTION
     Route: 042
     Dates: start: 20240705, end: 20240705
  10. CARBOPLATIN [Suspect]
     Active Substance: CARBOPLATIN
     Dosage: 515 MG?FOA - INJECTION
     Route: 042
     Dates: start: 20240419, end: 20240419
  11. PEMBROLIZUMAB [Suspect]
     Active Substance: PEMBROLIZUMAB
     Indication: Non-small cell lung cancer metastatic
     Dosage: 200 MG?FOA - INJECTION
     Route: 042
     Dates: start: 20240510, end: 20240510
  12. PEMBROLIZUMAB [Suspect]
     Active Substance: PEMBROLIZUMAB
     Dosage: 200 MG?FOA - INJECTION
     Route: 042
     Dates: start: 20240705, end: 20240705
  13. PEMBROLIZUMAB [Suspect]
     Active Substance: PEMBROLIZUMAB
     Dosage: 200 MG?FOA - INJECTION
     Route: 042
     Dates: start: 20240802, end: 20240802
  14. PEMBROLIZUMAB [Suspect]
     Active Substance: PEMBROLIZUMAB
     Dosage: 200 MG?FOA - INJECTION
     Route: 042
     Dates: start: 20240419, end: 20240419
  15. PEMBROLIZUMAB [Suspect]
     Active Substance: PEMBROLIZUMAB
     Dosage: 200 MG?FOA - INJECTION
     Route: 042
     Dates: start: 20240614, end: 20240614
  16. KYTRIL [Concomitant]
     Active Substance: GRANISETRON HYDROCHLORIDE
     Indication: Premedication
     Route: 048
     Dates: start: 20240419
  17. ATENOLOL [Concomitant]
     Active Substance: ATENOLOL
     Indication: Hypertension
     Route: 048
     Dates: start: 2019
  18. PREDNISOLONE [Concomitant]
     Active Substance: PREDNISOLONE
     Indication: Premedication
     Route: 048
     Dates: start: 20240419
  19. FUROSEMIDE [Concomitant]
     Active Substance: FUROSEMIDE
     Indication: Cardiac failure
     Route: 042
     Dates: start: 20240802, end: 20240805
  20. LEVOTHYROXINE [Concomitant]
     Active Substance: LEVOTHYROXINE\LEVOTHYROXINE SODIUM
     Indication: Hypothyroidism
     Route: 048
     Dates: start: 2019
  21. XIGDUO XR [Concomitant]
     Active Substance: DAPAGLIFLOZIN PROPANEDIOL\METFORMIN HYDROCHLORIDE
     Indication: Diabetes mellitus
     Route: 048
     Dates: start: 2022
  22. COBAMAMIDE [Concomitant]
     Active Substance: COBAMAMIDE
     Indication: Prophylaxis
     Route: 030
     Dates: start: 20240404
  23. OXYGEN [Concomitant]
     Active Substance: OXYGEN
     Indication: Cardiac failure
     Route: 055
     Dates: start: 20240802, end: 20240805
  24. EMEND [Concomitant]
     Active Substance: APREPITANT
     Indication: Premedication
     Route: 048
     Dates: start: 20240419
  25. ALLOPURINOL [Concomitant]
     Active Substance: ALLOPURINOL
     Indication: Gout
     Route: 048
     Dates: start: 2014
  26. KARDEGIC [Concomitant]
     Active Substance: ASPIRIN DL-LYSINE
     Indication: Prophylaxis
     Route: 048
     Dates: start: 2019
  27. TAHOR [Concomitant]
     Active Substance: ATORVASTATIN CALCIUM
     Indication: Hypercholesterolaemia
     Route: 048
     Dates: start: 2019
  28. POLYETHYLENE GLYCOLS [Concomitant]
     Active Substance: POLYETHYLENE GLYCOLS
     Indication: Constipation
     Route: 048
     Dates: start: 2019
  29. ALDACTONE [Concomitant]
     Active Substance: SPIRONOLACTONE
     Indication: Hypertension
     Route: 048
     Dates: start: 2021
  30. CHOLECALCIFEROL [Concomitant]
     Active Substance: CHOLECALCIFEROL
     Indication: Prophylaxis
     Route: 048
  31. CHOLECALCIFEROL [Concomitant]
     Active Substance: CHOLECALCIFEROL
     Route: 048
  32. CHOLECALCIFEROL [Concomitant]
     Active Substance: CHOLECALCIFEROL
     Route: 048
  33. TOUJEO [Concomitant]
     Active Substance: INSULIN GLARGINE
     Indication: Diabetes mellitus
     Route: 058
     Dates: start: 2022
  34. ESIDREX [Concomitant]
     Active Substance: HYDROCHLOROTHIAZIDE
     Indication: Dysuria
     Route: 048
     Dates: start: 2019
  35. SEREVENT DISKUS [Concomitant]
     Active Substance: SALMETEROL XINAFOATE
     Indication: Dyspnoea
     Route: 055
     Dates: start: 20240518
  36. ESOMEPRAZOLE MAGNESIUM [Concomitant]
     Active Substance: ESOMEPRAZOLE MAGNESIUM
     Indication: Prophylaxis
     Route: 048
  37. ESOMEPRAZOLE MAGNESIUM [Concomitant]
     Active Substance: ESOMEPRAZOLE MAGNESIUM
     Route: 048
  38. ESOMEPRAZOLE MAGNESIUM [Concomitant]
     Active Substance: ESOMEPRAZOLE MAGNESIUM
     Route: 048
  39. POTASSIUM CHLORIDE [Concomitant]
     Active Substance: POTASSIUM CHLORIDE
     Indication: Prophylaxis
     Route: 048
     Dates: start: 20240802
  40. FOLIC ACID [Concomitant]
     Active Substance: FOLIC ACID
     Indication: Prophylaxis
     Route: 048
     Dates: start: 20240404

REACTIONS (2)
  - Anaemia [Recovered/Resolved]
  - Cardiac failure [Recovered/Resolved]

NARRATIVE: CASE EVENT DATE: 20240712
